FAERS Safety Report 9084463 (Version 1)
Quarter: 2013Q1

REPORT INFORMATION
  Report Type: Report from Study
  Country: US (occurrence: US)
  Receive Date: 20130129
  Receipt Date: 20130129
  Transmission Date: 20140127
  Serious: No
  Sender: FDA-Public Use
  Company Number: US-ABBOTT-12P-163-0946298-00

PATIENT
  Age: 31 Year
  Sex: Female

DRUGS (6)
  1. HUMIRA 40 MG/0.8 ML PEN [Suspect]
     Indication: COLITIS ULCERATIVE
     Dates: start: 20120613
  2. MULTIVITAMIN [Concomitant]
     Indication: IMMUNE SYSTEM DISORDER
     Dosage: OVER THE COUNTER
  3. VITAMIN C [Concomitant]
     Indication: IMMUNE SYSTEM DISORDER
  4. VITAMIN B6 [Concomitant]
     Indication: IMMUNE SYSTEM DISORDER
  5. VITAMIN B12 [Concomitant]
     Indication: IMMUNE SYSTEM DISORDER
  6. IRON [Concomitant]
     Indication: IMMUNE SYSTEM DISORDER

REACTIONS (1)
  - Injection site pain [Recovered/Resolved]
